FAERS Safety Report 13532208 (Version 2)
Quarter: 2017Q2

REPORT INFORMATION
  Report Type: Spontaneous
  Country: US (occurrence: US)
  Receive Date: 20170510
  Receipt Date: 20170516
  Transmission Date: 20170830
  Serious: No
  Sender: FDA-Public Use
  Company Number: US-009507513-1704USA011015

PATIENT
  Sex: Female

DRUGS (1)
  1. NEXPLANON [Suspect]
     Active Substance: ETONOGESTREL
     Dosage: 1 ROD, UNK
     Dates: start: 201604

REACTIONS (4)
  - Device difficult to use [Unknown]
  - Device deployment issue [Unknown]
  - Weight increased [Unknown]
  - Complication of device removal [Unknown]
